FAERS Safety Report 25350990 (Version 1)
Quarter: 2025Q2

REPORT INFORMATION
  Report Type: Spontaneous
  Country: US (occurrence: US)
  Receive Date: 20250523
  Receipt Date: 20250523
  Transmission Date: 20250717
  Serious: No
  Sender: GLAXOSMITHKLINE
  Company Number: US-GSK-US2025062718

PATIENT
  Age: 64 Year
  Sex: Female

DRUGS (3)
  1. JEMPERLI [Suspect]
     Active Substance: DOSTARLIMAB-GXLY
     Indication: Endometrial cancer
     Dates: start: 20230809, end: 202312
  2. JEMPERLI [Suspect]
     Active Substance: DOSTARLIMAB-GXLY
  3. CONCERTA [Concomitant]
     Active Substance: METHYLPHENIDATE HYDROCHLORIDE
     Indication: Fatigue
     Dates: start: 20240723

REACTIONS (1)
  - Alopecia scarring [Not Recovered/Not Resolved]

NARRATIVE: CASE EVENT DATE: 20230901
